FAERS Safety Report 6171802-9 (Version None)
Quarter: 2009Q2

REPORT INFORMATION
  Report Type: 
  Country: None (occurrence: None)
  Receive Date: 20090429
  Receipt Date: 20090417
  Transmission Date: 20091009
  Serious: Yes (Death, Hospitalization)
  Sender: FDA-Public Use
  Company Number: US-ROCHE-621459

PATIENT
  Sex: Female
  Weight: 71.7 kg

DRUGS (9)
  1. CAPECITABINE [Suspect]
     Dosage: 1500 MG IN THE MORNING, 1500 MG IN THE EVENING
     Route: 048
     Dates: start: 20090121, end: 20090224
  2. TAXOTERE [Concomitant]
  3. ZOMETA [Concomitant]
  4. ASPIRIN [Concomitant]
  5. COREG [Concomitant]
  6. DECADRON [Concomitant]
  7. HYDROCHLOROTHIAZIDE [Concomitant]
  8. LIPITOR [Concomitant]
  9. PREDNISONE [Concomitant]

REACTIONS (3)
  - ADVERSE REACTION [None]
  - DEATH [None]
  - PAIN [None]
